FAERS Safety Report 13707956 (Version 1)
Quarter: 2017Q2

REPORT INFORMATION
  Report Type: Spontaneous
  Country: AR (occurrence: AR)
  Receive Date: 20170630
  Receipt Date: 20170630
  Transmission Date: 20170830
  Serious: Yes (Other)
  Sender: FDA-Public Use
  Company Number: PHHY2017AR086221

PATIENT
  Age: 71 Year
  Sex: Female

DRUGS (3)
  1. INSULIN [Concomitant]
     Active Substance: INSULIN NOS
     Indication: PRODUCT USED FOR UNKNOWN INDICATION
     Dosage: UNK
     Route: 065
  2. DIOVAN [Suspect]
     Active Substance: VALSARTAN
     Indication: BLOOD PRESSURE ABNORMAL
     Dosage: 160 MG, UNK (ONE THIRD OF A TABLET PER DAY)
     Route: 065
  3. GALVUS MET [Suspect]
     Active Substance: METFORMIN HYDROCHLORIDE\VILDAGLIPTIN
     Indication: TYPE 1 DIABETES MELLITUS
     Dosage: 2 DF, QD (STARTED MANY YEARS AGO)
     Route: 065

REACTIONS (8)
  - Red blood cell count decreased [Not Recovered/Not Resolved]
  - Agitation [Unknown]
  - Anaemia [Not Recovered/Not Resolved]
  - Haemangioma [Unknown]
  - Cough [Unknown]
  - Feeling abnormal [Unknown]
  - Blood glucose abnormal [Unknown]
  - Petechiae [Unknown]
